FAERS Safety Report 22090603 (Version 16)
Quarter: 2023Q2

REPORT INFORMATION
  Report Type: Report from Study
  Country: US (occurrence: US)
  Receive Date: 20230313
  Receipt Date: 20230629
  Transmission Date: 20230722
  Serious: Yes (Hospitalization, Other)
  Sender: FDA-Public Use
  Company Number: US-JAZZ PHARMACEUTICALS-2023-US-004873

PATIENT
  Age: 43 Year
  Sex: Female

DRUGS (4)
  1. XYWAV [Suspect]
     Active Substance: CALCIUM OXYBATE\MAGNESIUM OXYBATE\POTASSIUM OXYBATE\SODIUM OXYBATE
     Indication: Narcolepsy
     Dosage: 2.25 GRAM
  2. XYWAV [Suspect]
     Active Substance: CALCIUM OXYBATE\MAGNESIUM OXYBATE\POTASSIUM OXYBATE\SODIUM OXYBATE
     Indication: Cataplexy
     Dosage: 3.5 GRAM, BID
  3. XYWAV [Suspect]
     Active Substance: CALCIUM OXYBATE\MAGNESIUM OXYBATE\POTASSIUM OXYBATE\SODIUM OXYBATE
     Dosage: 3.25 GRAM, BID
     Dates: end: 20230505
  4. SEDATIVE BOMBASTUS N [Concomitant]
     Indication: Product used for unknown indication
     Dosage: UNK
     Dates: start: 20230303

REACTIONS (30)
  - Dyspnoea [Unknown]
  - Mania [Unknown]
  - Suicidal ideation [Recovered/Resolved]
  - Psychotic disorder [Unknown]
  - Cataplexy [Unknown]
  - Drug abuse [Unknown]
  - Stress [Unknown]
  - Renal disorder [Unknown]
  - Feeling abnormal [Unknown]
  - Clumsiness [Unknown]
  - Abnormal dreams [Unknown]
  - Nervousness [Unknown]
  - Somnambulism [Unknown]
  - Sleep talking [Unknown]
  - Headache [Unknown]
  - Paraesthesia [Unknown]
  - Balance disorder [Unknown]
  - Insomnia [Unknown]
  - Nausea [Unknown]
  - Unevaluable event [Unknown]
  - Confusional state [Unknown]
  - Fatigue [Unknown]
  - Wrong technique in product usage process [Unknown]
  - Product dose omission issue [Unknown]
  - Drug effect less than expected [Unknown]
  - Treatment noncompliance [Unknown]
  - Extra dose administered [Unknown]
  - Intentional product use issue [Unknown]
  - Drug titration error [Unknown]
  - Anxiety [Unknown]

NARRATIVE: CASE EVENT DATE: 20230303
